FAERS Safety Report 7440802-0 (Version None)
Quarter: 2011Q2

REPORT INFORMATION
  Report Type: 
  Country: None (occurrence: None)
  Receive Date: 20110427
  Receipt Date: 20110425
  Transmission Date: 20111010
  Serious: Yes (Death, Other)
  Sender: FDA-Public Use
  Company Number: US-AMGEN-USASP2011020903

PATIENT
  Age: 85 Year
  Sex: Male

DRUGS (3)
  1. DECADRON [Concomitant]
  2. NPLATE [Suspect]
     Indication: IDIOPATHIC THROMBOCYTOPENIC PURPURA
     Dates: start: 20110415
  3. IMMUNOGLOBULINS [Concomitant]

REACTIONS (4)
  - PNEUMONIA [None]
  - SUBDURAL HAEMATOMA [None]
  - DRUG INEFFECTIVE [None]
  - SEPSIS [None]
